FAERS Safety Report 15288573 (Version 1)
Quarter: 2018Q3

REPORT INFORMATION
  Report Type: Spontaneous
  Country: NL (occurrence: NL)
  Receive Date: 20180817
  Receipt Date: 20180817
  Transmission Date: 20181010
  Serious: Yes (Other)
  Sender: FDA-Public Use
  Company Number: NL-TEVA-2018-NL-943479

PATIENT
  Age: 67 Year
  Sex: Male
  Weight: 57 kg

DRUGS (3)
  1. PANTOPRAZOL AUROBINDO [Suspect]
     Active Substance: PANTOPRAZOLE SODIUM
     Indication: PROPHYLAXIS AGAINST GASTROINTESTINAL ULCER
     Dosage: 2X PER DAG 1 STUK
     Route: 065
     Dates: start: 20180715, end: 20180715
  2. DABIGATRAN ETEXILAAT CAPSULE 110MG [Concomitant]
     Dosage: 2X PER DAG 1 STUK
     Dates: start: 20180704
  3. CARVEDILOL TABLET 3,125MG [Concomitant]
     Dosage: 2X PER DAG 0,5 STUK
     Dates: start: 20180712

REACTIONS (1)
  - Diarrhoea haemorrhagic [Recovered/Resolved]

NARRATIVE: CASE EVENT DATE: 20180715
